FAERS Safety Report 8078480-2 (Version None)
Quarter: 2012Q1

REPORT INFORMATION
  Report Type: 
  Country: None (occurrence: None)
  Receive Date: 20120127
  Receipt Date: 20110214
  Transmission Date: 20120608
  Serious: No
  Sender: FDA-Public Use
  Company Number: PR-ABBOTT-11P-131-0705444-00

PATIENT
  Sex: Male
  Weight: 85.352 kg

DRUGS (1)
  1. HUMIRA [Suspect]
     Indication: PSORIATIC ARTHROPATHY
     Route: 058
     Dates: start: 20100701

REACTIONS (2)
  - INJECTION SITE REACTION [None]
  - INCORRECT DOSE ADMINISTERED [None]
